FAERS Safety Report 13047415 (Version 3)
Quarter: 2017Q3

REPORT INFORMATION
  Report Type: Report from Study
  Country: TW (occurrence: TW)
  Receive Date: 20161220
  Receipt Date: 20170804
  Transmission Date: 20171127
  Serious: Yes (Death)
  Sender: FDA-Public Use
  Company Number: TW-BAYER-2016-233312

PATIENT
  Age: 78 Year
  Sex: Male
  Weight: 64 kg

DRUGS (7)
  1. ACETAMINOPHEN. [Concomitant]
     Active Substance: ACETAMINOPHEN
     Indication: PYREXIA
     Dosage: 2000 MG, QD
     Dates: start: 20161111, end: 20161113
  2. STIVARGA [Suspect]
     Active Substance: REGORAFENIB
     Indication: COLORECTAL CANCER METASTATIC
     Dosage: 160 MG, QD
     Route: 048
     Dates: start: 20161028, end: 20161108
  3. ALBUMIN [Concomitant]
     Active Substance: ALBUMIN HUMAN
     Dosage: 2 B DAILY
     Dates: start: 20161110, end: 20161113
  4. ACETAMINOPHEN. [Concomitant]
     Active Substance: ACETAMINOPHEN
     Indication: PYREXIA
     Dosage: UNK
     Dates: start: 20161108, end: 20161108
  5. KETOROLAC [Concomitant]
     Active Substance: KETOROLAC\KETOROLAC TROMETHAMINE
     Dosage: 1 A DAILY
     Dates: start: 20161110, end: 20161110
  6. STIVARGA [Suspect]
     Active Substance: REGORAFENIB
     Indication: COLORECTAL CANCER METASTATIC
     Dosage: 80 MG, QD
     Route: 048
     Dates: start: 20161109, end: 20161109
  7. CEFPIROME [Concomitant]
     Active Substance: CEFPIROME
     Dosage: 2 G, QD
     Dates: start: 20161109, end: 20161113

REACTIONS (1)
  - Sepsis [Fatal]

NARRATIVE: CASE EVENT DATE: 20161109
